FAERS Safety Report 8610684-X (Version None)
Quarter: 2012Q3

REPORT INFORMATION
  Report Type: 
  Country: None (occurrence: None)
  Receive Date: 20120808
  Receipt Date: 20120726
  Transmission Date: 20120928
  Serious: Yes (Hospitalization, Other)
  Sender: FDA-Public Use
  Company Number: NSR_00598_2012

PATIENT
  Age: 44 Year
  Sex: Female

DRUGS (3)
  1. OLANZAPINE [Concomitant]
  2. LAMOTRIGINE [Suspect]
     Indication: PSYCHOTIC DISORDER
     Dosage: (DF [HOME MEDICATION REGIMEN]), (DF [TITRATED DURING HOSPITALIZATON])
  3. CLOZAPINE [Suspect]
     Indication: PSYCHOTIC DISORDER
     Dosage: (DF [HOME REGIMEN]) (DF [TITRATED DURING HOSPITALIZATION])

REACTIONS (2)
  - NEUROLEPTIC MALIGNANT SYNDROME [None]
  - RASH [None]
